FAERS Safety Report 5196894-5 (Version None)
Quarter: 2007Q1

REPORT INFORMATION
  Report Type: 
  Country: None (occurrence: None)
  Receive Date: 20070103
  Receipt Date: 20061221
  Transmission Date: 20070707
  Serious: Yes (Other)
  Sender: FDA-Public Use
  Company Number: PHBS2006JP18338

PATIENT
  Age: 4 Year
  Sex: Female

DRUGS (9)
  1. NEORAL [Suspect]
     Indication: GRAFT VERSUS HOST DISEASE
     Route: 065
  2. NEORAL [Suspect]
     Route: 065
  3. L-PAM [Concomitant]
     Dosage: 70 MG/M2/D
  4. IRRADIATION [Concomitant]
     Dosage: 6 GY
  5. FLUDARABINE [Concomitant]
     Dosage: 180 MG/M2
  6. CYCLOPHOSPHAMIDE [Concomitant]
     Dosage: 50 MG/M2
  7. ATGAM [Concomitant]
     Dosage: 40 MG/KG/D
  8. FK 506 [Concomitant]
  9. METHOTREXATE [Concomitant]

REACTIONS (4)
  - COLITIS ULCERATIVE [None]
  - GRAFT VERSUS HOST DISEASE [None]
  - HAEMATOCHEZIA [None]
  - MUCOUS STOOLS [None]
